FAERS Safety Report 7304266-X (Version None)
Quarter: 2011Q1

REPORT INFORMATION
  Report Type: 
  Country: None (occurrence: None)
  Receive Date: 20110221
  Receipt Date: 20110210
  Transmission Date: 20110831
  Serious: Yes (Hospitalization, Other)
  Sender: FDA-Public Use
  Company Number: PHHY2011US11217

PATIENT
  Age: 38 Year
  Sex: Female
  Weight: 25 kg

DRUGS (14)
  1. NEORAL [Suspect]
     Dosage: 125 MG
     Route: 048
     Dates: start: 19990101
  2. RAMIPRIL [Concomitant]
     Indication: BLOOD PRESSURE INCREASED
     Dosage: 5 MG, DAILY
     Route: 048
     Dates: start: 20020101
  3. SIMVASTATIN [Concomitant]
     Indication: BLOOD CHOLESTEROL INCREASED
     Dosage: 40 MG, DAILY
     Route: 048
     Dates: start: 20080101
  4. NEORAL [Suspect]
     Indication: PROPHYLAXIS AGAINST TRANSPLANT REJECTION
     Dosage: 150 MG DAILY
     Route: 048
     Dates: start: 19910210
  5. IMURAN [Concomitant]
     Dosage: 25 MG
     Dates: start: 20080121
  6. ACTONEL [Concomitant]
     Indication: OSTEOPOROSIS
     Dosage: 150 MG
     Dates: start: 20020101
  7. ALLOPURINOL [Concomitant]
     Indication: GOUT
     Dosage: 100 MG DAILY
     Route: 048
     Dates: start: 20040101
  8. PREDNISONE [Concomitant]
     Indication: TRANSPLANT REJECTION
     Dosage: 50 MG
     Route: 048
     Dates: start: 19910210
  9. IMURAN [Concomitant]
     Indication: RENAL TRANSPLANT
     Dosage: 100 MG
     Dates: start: 19910210
  10. ARANESP [Concomitant]
     Indication: ANAEMIA
     Dosage: 30 MCG AS NEEDED
     Dates: start: 20080630
  11. ARANESP [Concomitant]
     Dosage: 20 MCG WEEKLY
     Dates: start: 20100906
  12. PREDNISONE [Concomitant]
     Dosage: 5 MG
     Route: 048
     Dates: start: 19960101
  13. RAMIPRIL [Concomitant]
     Dosage: 2.5 MG, DAILY
     Route: 048
     Dates: start: 20080630, end: 20110110
  14. SIMVASTATIN [Concomitant]
     Dosage: 20 MG DAILY
     Route: 048
     Dates: start: 20080630

REACTIONS (5)
  - CLOSTRIDIAL INFECTION [None]
  - BLOOD CHOLESTEROL INCREASED [None]
  - GOUT [None]
  - OSTEOPOROSIS [None]
  - ANAEMIA [None]
